FAERS Safety Report 11010533 (Version 1)
Quarter: 2015Q2

REPORT INFORMATION
  Report Type: Spontaneous
  Country: JP (occurrence: JP)
  Receive Date: 20150410
  Receipt Date: 20150410
  Transmission Date: 20150821
  Serious: Yes (Hospitalization)
  Sender: FDA-Public Use
  Company Number: JP-PERRIGO-15JP003533

PATIENT
  Age: 40 Year
  Sex: Female

DRUGS (1)
  1. ACETAMINOPHEN 650MG ER 544 [Suspect]
     Active Substance: ACETAMINOPHEN
     Indication: PRODUCT USED FOR UNKNOWN INDICATION
     Dosage: UNK
     Route: 065

REACTIONS (5)
  - Vanishing bile duct syndrome [Recovered/Resolved]
  - Liver transplant [None]
  - Stevens-Johnson syndrome [Unknown]
  - Hepatic failure [Recovering/Resolving]
  - Jaundice cholestatic [Unknown]

NARRATIVE: CASE EVENT DATE: 201311
